FAERS Safety Report 8426751-X (Version None)
Quarter: 2012Q2

REPORT INFORMATION
  Report Type: 
  Country: None (occurrence: None)
  Receive Date: 20120611
  Receipt Date: 20120604
  Transmission Date: 20120825
  Serious: Yes (Other)
  Sender: FDA-Public Use
  Company Number: PHHY2012FR048818

PATIENT
  Sex: Male

DRUGS (9)
  1. MYAMBUTOL [Suspect]
     Dosage: 1200 MG, QD
     Route: 048
     Dates: start: 20110215, end: 20110415
  2. VOLTAREN [Suspect]
     Indication: ANKYLOSING SPONDYLITIS
     Dosage: 75 MG, QD
     Route: 048
     Dates: start: 20080101, end: 20110727
  3. RIFAMPIN AND ISONIAZID [Suspect]
     Dosage: 2 DF, QD
     Route: 048
     Dates: start: 20110701, end: 20110815
  4. REMICADE [Suspect]
     Indication: ANKYLOSING SPONDYLITIS
     Dosage: 5 MG/KG, EVERY 15 DAYS
     Route: 042
  5. REMICADE [Suspect]
     Dosage: 300 MG, ONCE/SINGLE
     Dates: start: 20110727
  6. LANSOPRAZOLE [Suspect]
     Indication: ANKYLOSING SPONDYLITIS
     Dosage: 15 MG, QD
     Dates: start: 20080101, end: 20110908
  7. RIFAMPIN AND ISONIAZID [Suspect]
     Dosage: 2 DF, QD
     Route: 049
     Dates: start: 20110415, end: 20110727
  8. ACETAMINOPHEN [Suspect]
     Indication: ARTHRALGIA
     Dosage: 1 DF, TID
     Dates: end: 20110908
  9. RIFATER [Suspect]
     Dosage: 1 DF, QD
     Route: 048
     Dates: start: 20110215, end: 20110401

REACTIONS (3)
  - CHOLESTASIS [None]
  - HEPATOMEGALY [None]
  - CYTOLYTIC HEPATITIS [None]
